FAERS Safety Report 10331870 (Version 1)
Quarter: 2014Q3

REPORT INFORMATION
  Report Type: Spontaneous
  Country: US (occurrence: US)
  Receive Date: 20140722
  Receipt Date: 20140722
  Transmission Date: 20150326
  Serious: No
  Sender: FDA-Public Use
  Company Number: US-UNITED THERAPEUTICS-UNT-2014-000301

PATIENT
  Age: 59 Year
  Sex: Female
  Weight: 68.3 kg

DRUGS (2)
  1. REMODULIN [Suspect]
     Active Substance: TREPROSTINIL
     Indication: PULMONARY ARTERIAL HYPERTENSION
     Dosage: .0205 ?G/KG/MIN, CONTINUING
     Route: 058
     Dates: start: 20140501
  2. WARFARIN [Concomitant]
     Active Substance: WARFARIN
     Indication: PRODUCT USED FOR UNKNOWN INDICATION

REACTIONS (3)
  - Infusion site swelling [Recovering/Resolving]
  - Infusion site erythema [Recovering/Resolving]
  - Infusion site haemorrhage [Unknown]

NARRATIVE: CASE EVENT DATE: 201405
